FAERS Safety Report 5997188-8 (Version None)
Quarter: 2008Q4

REPORT INFORMATION
  Report Type: 
  Country: None (occurrence: None)
  Receive Date: 20081212
  Receipt Date: 20081105
  Transmission Date: 20090506
  Serious: No
  Sender: FDA-Public Use
  Company Number: US-ABBOTT-08P-163-0485724-00

PATIENT
  Sex: Female
  Weight: 50.848 kg

DRUGS (4)
  1. HUMIRA [Suspect]
     Indication: CROHN'S DISEASE
     Route: 058
     Dates: start: 20080901
  2. PRAMASOME [Concomitant]
     Indication: CROHN'S DISEASE
     Route: 054
  3. MULTI-VITAMINS [Concomitant]
     Indication: ANAEMIA
     Route: 048
  4. MESALAMINE [Concomitant]
     Indication: CROHN'S DISEASE
     Route: 054

REACTIONS (1)
  - INCORRECT DOSE ADMINISTERED [None]
